FAERS Safety Report 14462630 (Version 2)
Quarter: 2019Q1

REPORT INFORMATION
  Report Type: Other
  Country: US (occurrence: US)
  Receive Date: 20180130
  Receipt Date: 20190126
  Transmission Date: 20190417
  Serious: No
  Sender: FDA-Public Use
  Company Number: US-ACORDA-ACO_145052_2017

PATIENT
  Age: 34 Year
  Sex: Female
  Weight: 45.35 kg

DRUGS (1)
  1. AMPYRA [Suspect]
     Active Substance: DALFAMPRIDINE
     Indication: MULTIPLE SCLEROSIS
     Dosage: 10 MG, Q 12 HRS
     Route: 048

REACTIONS (4)
  - Memory impairment [Unknown]
  - Product dose omission [Unknown]
  - Extra dose administered [Unknown]
  - Amnesia [Unknown]

NARRATIVE: CASE EVENT DATE: 2014
